FAERS Safety Report 8495221-5 (Version None)
Quarter: 2012Q3

REPORT INFORMATION
  Report Type: 
  Country: None (occurrence: None)
  Receive Date: 20120702
  Receipt Date: 20120702
  Transmission Date: 20120928
  Serious: Yes (Life-Threatening)
  Sender: FDA-Public Use
  Company Number: None

PATIENT
  Age: 44 Year
  Sex: Female
  Weight: 90.7194 kg

DRUGS (1)
  1. LYRICA [Suspect]
     Indication: FIBROMYALGIA
     Dosage: 150 MG Q HS PO
     Route: 048
     Dates: start: 20120412, end: 20120625

REACTIONS (6)
  - ABDOMINAL DISCOMFORT [None]
  - SUICIDAL IDEATION [None]
  - CRYING [None]
  - HEADACHE [None]
  - ANXIETY [None]
  - WITHDRAWAL SYNDROME [None]
